FAERS Safety Report 7907894-3 (Version None)
Quarter: 2011Q4

REPORT INFORMATION
  Report Type: 
  Country: None (occurrence: None)
  Receive Date: 20111110
  Receipt Date: 20110617
  Transmission Date: 20120403
  Serious: Yes (Other)
  Sender: FDA-Public Use
  Company Number: PHHY2011CA48393

PATIENT
  Sex: Male

DRUGS (1)
  1. TOBI [Suspect]
     Indication: PSEUDOMONAS INFECTION
     Dosage: 4 DF, BID

REACTIONS (3)
  - GENERAL PHYSICAL HEALTH DETERIORATION [None]
  - PSEUDOMONAS INFECTION [None]
  - PULMONARY FUNCTION TEST DECREASED [None]
